FAERS Safety Report 11111456 (Version 2)
Quarter: 2015Q2

REPORT INFORMATION
  Report Type: Spontaneous
  Country: GB (occurrence: GB)
  Receive Date: 20150513
  Receipt Date: 20150605
  Transmission Date: 20150821
  Serious: Yes (Hospitalization, Other)
  Sender: FDA-Public Use
  Company Number: PHFR2014GB008184

PATIENT
  Age: 32 Year
  Sex: Male
  Weight: 150 kg

DRUGS (11)
  1. LACTULOSE. [Concomitant]
     Active Substance: LACTULOSE
     Indication: CONSTIPATION
     Dosage: 20 ML, TID (THREE TIMES A DAY (TDS))
     Route: 048
  2. SERTRALINE [Concomitant]
     Active Substance: SERTRALINE HYDROCHLORIDE
     Indication: DEPRESSION
     Dosage: 100 MG, QD
     Route: 048
  3. SIMVASTATIN. [Concomitant]
     Active Substance: SIMVASTATIN
     Indication: BLOOD CHOLESTEROL
     Dosage: 20 MG, QD
     Route: 048
  4. CLOZARIL [Suspect]
     Active Substance: CLOZAPINE
     Indication: PSYCHOTIC DISORDER
     Dosage: 300 MG, DAILY
     Route: 048
  5. CLOZARIL [Suspect]
     Active Substance: CLOZAPINE
     Indication: SCHIZOPHRENIA
     Dosage: UNK
     Route: 048
     Dates: start: 20130513
  6. ORLISTAT [Concomitant]
     Active Substance: ORLISTAT
     Indication: WEIGHT DECREASED
     Dosage: 360 MG, UNK
     Route: 048
     Dates: start: 201403
  7. SIMVASTATIN. [Concomitant]
     Active Substance: SIMVASTATIN
     Indication: GASTROOESOPHAGEAL REFLUX DISEASE
  8. PROCYCLIDINE [Concomitant]
     Active Substance: PROCYCLIDINE
     Indication: SALIVARY HYPERSECRETION
     Dosage: 15 MG, UNK
     Route: 048
     Dates: start: 201307
  9. METFORMIN [Concomitant]
     Active Substance: METFORMIN HYDROCHLORIDE
     Indication: DIABETES MELLITUS
     Dosage: 500 MG, BID
     Route: 048
  10. OMEPRAZOLE. [Concomitant]
     Active Substance: OMEPRAZOLE
     Indication: GASTRITIS
     Dosage: 20 MG, QD
     Route: 048
  11. SALBUTAMOL [Concomitant]
     Active Substance: ALBUTEROL
     Indication: PRODUCT USED FOR UNKNOWN INDICATION
     Dosage: UNK, PRN (MAY QDS)
     Route: 055

REACTIONS (5)
  - Pneumonia [Recovered/Resolved]
  - Sinus tachycardia [Not Recovered/Not Resolved]
  - Pneumonia [Recovered/Resolved]
  - Electrocardiogram QT prolonged [Not Recovered/Not Resolved]
  - Influenza [Unknown]

NARRATIVE: CASE EVENT DATE: 20140414
